FAERS Safety Report 18386853 (Version 1)
Quarter: 2020Q4

REPORT INFORMATION
  Report Type: Spontaneous
  Country: US (occurrence: US)
  Receive Date: 20201014
  Receipt Date: 20201014
  Transmission Date: 20210114
  Serious: Yes (Death)
  Sender: FDA-Public Use
  Company Number: None

PATIENT
  Age: 72 Year
  Sex: Male
  Weight: 102.6 kg

DRUGS (18)
  1. ALBUTEROL. [Concomitant]
     Active Substance: ALBUTEROL
  2. BENZONATATE. [Concomitant]
     Active Substance: BENZONATATE
  3. FAMOTIDINE. [Concomitant]
     Active Substance: FAMOTIDINE
  4. ATORVASTATIN [Concomitant]
     Active Substance: ATORVASTATIN
  5. METOPROLOL SUCCINATE. [Concomitant]
     Active Substance: METOPROLOL SUCCINATE
  6. ENOXAPARIN [Concomitant]
     Active Substance: ENOXAPARIN
  7. OXYMETAZOLINE [Concomitant]
     Active Substance: OXYMETAZOLINE
  8. SENNA - DOCUSATE 8.5 - 50 [Concomitant]
  9. CLOPIDOGREL [Concomitant]
     Active Substance: CLOPIDOGREL BISULFATE
  10. DEXMEDETOMIDINE. [Concomitant]
     Active Substance: DEXMEDETOMIDINE
  11. ONDANSETRON [Concomitant]
     Active Substance: ONDANSETRON
  12. DEXAMETHASONE. [Concomitant]
     Active Substance: DEXAMETHASONE
  13. LORAZEPAM. [Concomitant]
     Active Substance: LORAZEPAM
  14. VERAPAMIL [Concomitant]
     Active Substance: VERAPAMIL HYDROCHLORIDE
  15. HYDROCODONE-CHLORPHENIRAMINE [Concomitant]
  16. REMDESIVIR SOLUTION 100MG VIAL [Suspect]
     Active Substance: REMDESIVIR
     Indication: COVID-19 PNEUMONIA
     Dosage: ?          OTHER ROUTE:IV?
     Route: 042
     Dates: start: 20200923, end: 20200923
  17. REMDESIVIR SOLUTION 100MG VIAL [Suspect]
     Active Substance: REMDESIVIR
     Indication: COVID-19
     Dosage: ?          OTHER FREQUENCY:Q24HR;OTHER ROUTE:IV?
     Route: 042
     Dates: start: 20200924, end: 20200927
  18. ACETAMINOPHEN. [Concomitant]
     Active Substance: ACETAMINOPHEN

REACTIONS (5)
  - Respiratory failure [None]
  - Respiratory distress [None]
  - Delirium [None]
  - General physical health deterioration [None]
  - Apnoea [None]

NARRATIVE: CASE EVENT DATE: 20201004
